FAERS Safety Report 25836569 (Version 1)
Quarter: 2025Q3

REPORT INFORMATION
  Report Type: Spontaneous
  Country: US (occurrence: None)
  Receive Date: 20250923
  Receipt Date: 20250923
  Transmission Date: 20251020
  Serious: Yes (Death, Hospitalization)
  Sender: FDA-CTU
  Company Number: None

PATIENT
  Age: 75 Year
  Sex: Female
  Weight: 103.6 kg

DRUGS (4)
  1. FLUOROURACIL [Suspect]
     Active Substance: FLUOROURACIL
     Dates: end: 20250821
  2. CAMPTOSAR [Suspect]
     Active Substance: IRINOTECAN HYDROCHLORIDE
  3. LEUCOVORIN CALCIUM [Suspect]
     Active Substance: LEUCOVORIN CALCIUM
     Dates: end: 20250821
  4. ELOXATIN [Suspect]
     Active Substance: OXALIPLATIN
     Dates: end: 20250821

REACTIONS (25)
  - Nausea [None]
  - Vomiting [None]
  - Food intolerance [None]
  - Blood glucose increased [None]
  - Mental status changes [None]
  - Hypoxia [None]
  - Hypotension [None]
  - Acute myocardial infarction [None]
  - Thrombocytopenia [None]
  - Coagulopathy [None]
  - Stress cardiomyopathy [None]
  - Arteriospasm coronary [None]
  - Pulmonary embolism [None]
  - Cerebral disorder [None]
  - Acute kidney injury [None]
  - Metabolic acidosis [None]
  - Pancytopenia [None]
  - Lactic acidosis [None]
  - Ischaemic hepatitis [None]
  - Atrial fibrillation [None]
  - Serum ferritin increased [None]
  - Systemic inflammatory response syndrome [None]
  - Haemodynamic instability [None]
  - Neutropenic sepsis [None]
  - Multiple organ dysfunction syndrome [None]

NARRATIVE: CASE EVENT DATE: 20250825
